FAERS Safety Report 4592417-X (Version None)
Quarter: 2005Q1

REPORT INFORMATION
  Report Type: 
  Country: None (occurrence: None)
  Receive Date: 20050228
  Receipt Date: 20050119
  Transmission Date: 20050727
  Serious: Yes (Other)
  Sender: FDA-Public Use
  Company Number: US-BRISTOL-MYERS SQUIBB COMPANY-12831848

PATIENT
  Age: 61 Year
  Sex: Female
  Weight: 84 kg

DRUGS (4)
  1. ABILIFY [Suspect]
     Indication: BIPOLAR DISORDER
     Dosage: 30 MG 2 X DAY; THEN REDUCED TO 15 MG 1 X DAY AT NIGHT.
     Route: 048
     Dates: start: 20040901
  2. ABILIFY [Suspect]
     Indication: AGGRESSION
     Dosage: 30 MG 2 X DAY; THEN REDUCED TO 15 MG 1 X DAY AT NIGHT.
     Route: 048
     Dates: start: 20040901
  3. LIPITOR [Concomitant]
  4. INSULIN [Concomitant]

REACTIONS (25)
  - ANXIETY [None]
  - APATHY [None]
  - ASTHENIA [None]
  - BALANCE DISORDER [None]
  - BLOOD GLUCOSE INCREASED [None]
  - BRADYPHRENIA [None]
  - DISTURBANCE IN ATTENTION [None]
  - DROOLING [None]
  - DRY MOUTH [None]
  - DYSTONIA [None]
  - FEELING ABNORMAL [None]
  - FEELING JITTERY [None]
  - HEADACHE [None]
  - INSOMNIA [None]
  - MEMORY IMPAIRMENT [None]
  - MOVEMENT DISORDER [None]
  - MUSCLE SPASMS [None]
  - MUSCLE TWITCHING [None]
  - MUSCULOSKELETAL STIFFNESS [None]
  - POLLAKIURIA [None]
  - PRESCRIBED OVERDOSE [None]
  - RESTLESSNESS [None]
  - THIRST [None]
  - VISION BLURRED [None]
  - WEIGHT INCREASED [None]
